FAERS Safety Report 4751682-6 (Version None)
Quarter: 2005Q3

REPORT INFORMATION
  Report Type: 
  Country: None (occurrence: None)
  Receive Date: 20050823
  Receipt Date: 20050823
  Transmission Date: 20060218
  Serious: Yes (Other)
  Sender: FDA-Public Use
  Company Number: None

PATIENT
  Age: 52 Year
  Sex: Female
  Weight: 68.0396 kg

DRUGS (1)
  1. FENTANYL [Suspect]
     Indication: PAIN
     Dosage: 25MCG EVERY 72 HRS  EVERY 72 HRS TOP
     Route: 061
     Dates: start: 20050807, end: 20050822

REACTIONS (1)
  - PHARMACEUTICAL PRODUCT COMPLAINT [None]
